FAERS Safety Report 17221325 (Version 1)
Quarter: 2019Q4

REPORT INFORMATION
  Report Type: Spontaneous
  Country: CN (occurrence: CN)
  Receive Date: 20191231
  Receipt Date: 20191231
  Transmission Date: 20200122
  Serious: Yes (Other)
  Sender: FDA-Public Use
  Company Number: CN-BAXTER-2019BAX026308

PATIENT
  Age: 49 Year
  Sex: Male
  Weight: 75 kg

DRUGS (13)
  1. TROPISETRON HYDROCHLORIDE [Suspect]
     Active Substance: TROPISETRON HYDROCHLORIDE
     Indication: PROPHYLAXIS OF NAUSEA AND VOMITING
     Route: 041
     Dates: start: 20191203, end: 20191211
  2. CHUANGCHENG [Suspect]
     Active Substance: NETILMICIN SULFATE
     Indication: PNEUMONIA
     Route: 041
     Dates: start: 20191205, end: 20191206
  3. HUMAN ALBUMIN [Suspect]
     Active Substance: ALBUMIN HUMAN
     Indication: INTRACRANIAL PRESSURE INCREASED
     Route: 041
     Dates: start: 20191205, end: 20191214
  4. SODIUM CHLORIDE. [Suspect]
     Active Substance: SODIUM CHLORIDE
     Dosage: AS PART OF CHUANGCHENG INJECTION + SODIUM CHLORIDE INJECTION COMBINATION
     Route: 041
     Dates: start: 20191205, end: 20191206
  5. FUROSEMIDE. [Suspect]
     Active Substance: FUROSEMIDE
     Indication: POLYURIA
     Route: 040
     Dates: start: 20191205, end: 20191213
  6. LEVETIRACETAM. [Suspect]
     Active Substance: LEVETIRACETAM
     Indication: SEIZURE PROPHYLAXIS
     Dosage: DOSAGE FORM: TABLET
     Route: 048
     Dates: start: 20191204, end: 20191219
  7. SODIUM CHLORIDE. [Suspect]
     Active Substance: SODIUM CHLORIDE
     Indication: VEHICLE SOLUTION USE
     Dosage: AS PART OF TROPISETRON HYDROCHLORIDE INJECTION + SODIUM CHLORIDE INJECTION COMBINATION
     Route: 041
     Dates: start: 20191203, end: 20191211
  8. 20% MANNITOL INJECTION [Suspect]
     Active Substance: MANNITOL
     Indication: INTRACRANIAL PRESSURE INCREASED
     Route: 041
     Dates: start: 20191204, end: 20191214
  9. INOFLOXACIN [AMBROXOL HYDROCHLORIDE] [Suspect]
     Active Substance: AMBROXOL HYDROCHLORIDE
     Indication: SPUTUM ABNORMAL
     Route: 041
     Dates: start: 20191203, end: 20191214
  10. SODIUM CHLORIDE. [Suspect]
     Active Substance: SODIUM CHLORIDE
     Dosage: AS PART OF XINGNAOJING INJECTION + SODIUM CHLORIDE INJECTION COMBINATION
     Route: 041
     Dates: start: 20191203, end: 20191214
  11. CALCIUM GLUCONATE. [Suspect]
     Active Substance: CALCIUM GLUCONATE
     Indication: ADVERSE EVENT
     Route: 041
     Dates: start: 20191206
  12. NORVASC [Suspect]
     Active Substance: AMLODIPINE BESYLATE
     Indication: HYPERTENSION
     Dosage: DOSAGE FORM: TABLET
     Route: 048
     Dates: start: 20191204, end: 20191219
  13. SODIUM CHLORIDE. [Suspect]
     Active Substance: SODIUM CHLORIDE
     Dosage: AS PART OF INOFLOXACIN INJECTION + SODIUM CHLORIDE INJECTION COMBINATION
     Route: 041
     Dates: start: 20191203, end: 20191214

REACTIONS (3)
  - Pruritus [Recovered/Resolved]
  - Pyrexia [Unknown]
  - Rash [Recovered/Resolved]

NARRATIVE: CASE EVENT DATE: 20191205
